FAERS Safety Report 6867028-3 (Version None)
Quarter: 2010Q3

REPORT INFORMATION
  Report Type: 
  Country: None (occurrence: None)
  Receive Date: 20100722
  Receipt Date: 20100722
  Transmission Date: 20110219
  Serious: Yes (Other)
  Sender: FDA-Public Use
  Company Number: None

PATIENT
  Sex: Female
  Weight: 58.9676 kg

DRUGS (2)
  1. ZOLOFT [Suspect]
     Indication: DEPRESSION
     Dosage: 100 MG TWICE QD PO
     Route: 048
     Dates: start: 20091101, end: 20100501
  2. ZOLOFT [Suspect]
     Indication: PANIC DISORDER
     Dosage: 100 MG TWICE QD PO
     Route: 048
     Dates: start: 20091101, end: 20100501

REACTIONS (3)
  - INCREASED APPETITE [None]
  - INSOMNIA [None]
  - PRODUCT SUBSTITUTION ISSUE [None]
